FAERS Safety Report 12741799 (Version 2)
Quarter: 2016Q4

REPORT INFORMATION
  Report Type: Spontaneous
  Country: US (occurrence: US)
  Receive Date: 20160914
  Receipt Date: 20161028
  Transmission Date: 20170207
  Serious: No
  Sender: FDA-Public Use
  Company Number: US-GLAXOSMITHKLINE-US2016GSK133734

PATIENT
  Age: 74 Year
  Sex: Male

DRUGS (3)
  1. TANZEUM [Suspect]
     Active Substance: ALBIGLUTIDE
     Dosage: 30 MG, WE
     Route: 042
  2. TANZEUM [Suspect]
     Active Substance: ALBIGLUTIDE
     Dosage: 30 MG WE
     Route: 042
     Dates: start: 20160808
  3. TANZEUM [Suspect]
     Active Substance: ALBIGLUTIDE
     Indication: TYPE 2 DIABETES MELLITUS
     Dosage: 30 MG, WE
     Route: 042
     Dates: start: 20160822

REACTIONS (18)
  - Cognitive disorder [Not Recovered/Not Resolved]
  - Exercise tolerance decreased [Not Recovered/Not Resolved]
  - Eyelid function disorder [Unknown]
  - Vision blurred [Unknown]
  - Pain [Not Recovered/Not Resolved]
  - Confusional state [Not Recovered/Not Resolved]
  - Musculoskeletal pain [Unknown]
  - Abdominal discomfort [Unknown]
  - Mood altered [Unknown]
  - Abnormal sensation in eye [Unknown]
  - Sensory disturbance [Not Recovered/Not Resolved]
  - Gingival pain [Unknown]
  - Diarrhoea [Unknown]
  - Disturbance in attention [Not Recovered/Not Resolved]
  - Back pain [Unknown]
  - Device use error [Unknown]
  - Arthralgia [Unknown]
  - Irritability [Not Recovered/Not Resolved]

NARRATIVE: CASE EVENT DATE: 20160829
